FAERS Safety Report 5276990-4 (Version None)
Quarter: 2007Q1

REPORT INFORMATION
  Report Type: 
  Country: None (occurrence: None)
  Receive Date: 20070327
  Receipt Date: 20070216
  Transmission Date: 20070707
  Serious: No
  Sender: FDA-Public Use
  Company Number: US-BRISTOL-MYERS SQUIBB COMPANY-13614516

PATIENT
  Age: 43 Year
  Sex: Female

DRUGS (15)
  1. ORENCIA [Suspect]
     Indication: RHEUMATOID ARTHRITIS
     Route: 042
     Dates: start: 20060908, end: 20061006
  2. COMBIVENT [Concomitant]
  3. SINGULAIR [Concomitant]
  4. VICODIN [Concomitant]
  5. XANAX [Concomitant]
  6. COMPAZINE [Concomitant]
  7. DURAGESIC-100 [Concomitant]
  8. PAXIL [Concomitant]
  9. CALCIUM + VITAMIN D [Concomitant]
  10. MEDROL [Concomitant]
  11. PREVACID [Concomitant]
  12. MOBIC [Concomitant]
  13. RESTORIL [Concomitant]
  14. ZANAFLEX [Concomitant]
  15. MULTI-VITAMIN [Concomitant]

REACTIONS (1)
  - DYSPHONIA [None]
